FAERS Safety Report 20217121 (Version 1)
Quarter: 2021Q4

REPORT INFORMATION
  Report Type: Spontaneous
  Country: US (occurrence: US)
  Receive Date: 20211222
  Receipt Date: 20211222
  Transmission Date: 20220303
  Serious: No
  Sender: FDA-Public Use
  Company Number: US-009507513-2112USA006737

PATIENT
  Sex: Male

DRUGS (1)
  1. KEYTRUDA [Suspect]
     Active Substance: PEMBROLIZUMAB
     Indication: Small cell lung cancer
     Dosage: 200 MILLIGRAM
     Route: 042
     Dates: start: 202105

REACTIONS (1)
  - Male genital examination abnormal [Unknown]

NARRATIVE: CASE EVENT DATE: 20210101
